FAERS Safety Report 25508262 (Version 1)
Quarter: 2025Q3

REPORT INFORMATION
  Report Type: Spontaneous
  Country: CN (occurrence: CN)
  Receive Date: 20250703
  Receipt Date: 20250703
  Transmission Date: 20251020
  Serious: Yes (Other)
  Sender: ROCHE
  Company Number: CN-ROCHE-10000323479

PATIENT
  Age: 1 Year
  Sex: Female

DRUGS (2)
  1. TOCILIZUMAB [Suspect]
     Active Substance: TOCILIZUMAB
     Indication: Adjuvant therapy
     Route: 042
     Dates: start: 20250416, end: 20250423
  2. LEUCOGEN [Concomitant]
     Active Substance: LEUCOGEN

REACTIONS (2)
  - Granulocyte count decreased [Not Recovered/Not Resolved]
  - Off label use [Unknown]

NARRATIVE: CASE EVENT DATE: 20250508
